FAERS Safety Report 11987695 (Version 2)
Quarter: 2016Q1

REPORT INFORMATION
  Report Type: Spontaneous
  Country: US (occurrence: US)
  Receive Date: 20160202
  Receipt Date: 20160302
  Transmission Date: 20160526
  Serious: Yes (Other)
  Sender: FDA-Public Use
  Company Number: US-ASTRAZENECA-2016SE09006

PATIENT
  Age: 29009 Day
  Sex: Male
  Weight: 54.4 kg

DRUGS (16)
  1. SYMBICORT [Suspect]
     Active Substance: BUDESONIDE\FORMOTEROL FUMARATE DIHYDRATE
     Indication: CHRONIC OBSTRUCTIVE PULMONARY DISEASE
     Dosage: 160/4.5 MCG, TWO PUFFS TWO TIMES PER DAY
     Route: 055
     Dates: start: 201504
  2. AMLODIPINE [Concomitant]
     Active Substance: AMLODIPINE BESYLATE
     Indication: HYPERTENSION
     Route: 050
  3. VITAMIN D3 [Concomitant]
     Active Substance: CHOLECALCIFEROL
     Indication: VITAMIN D DEFICIENCY
     Dosage: DAILY
     Route: 050
  4. FINASTERIDE. [Concomitant]
     Active Substance: FINASTERIDE
     Indication: BENIGN PROSTATIC HYPERPLASIA
  5. OMEPRAZOLE. [Suspect]
     Active Substance: OMEPRAZOLE
     Indication: GASTROOESOPHAGEAL REFLUX DISEASE
     Route: 050
     Dates: start: 201504, end: 201601
  6. OMEPRAZOLE. [Suspect]
     Active Substance: OMEPRAZOLE
     Indication: DYSPHAGIA
     Route: 050
     Dates: start: 201504, end: 201601
  7. ASPIRIN. [Concomitant]
     Active Substance: ASPIRIN
     Indication: PLATELET DISORDER
     Route: 050
  8. DILTIAZEM [Concomitant]
     Active Substance: DILTIAZEM
  9. COMBIVENT RESPIMAT [Concomitant]
     Active Substance: ALBUTEROL SULFATE\IPRATROPIUM BROMIDE
  10. COLACE [Concomitant]
     Active Substance: DOCUSATE SODIUM
     Indication: CONSTIPATION
     Dosage: 10 UNIT UNKNWON TWO TIMES A DAY
  11. OMEPRAZOLE. [Suspect]
     Active Substance: OMEPRAZOLE
     Indication: DYSPHAGIA
     Route: 050
  12. LATANOPROST. [Concomitant]
     Active Substance: LATANOPROST
     Indication: GLAUCOMA
     Route: 047
  13. OMEPRAZOLE. [Suspect]
     Active Substance: OMEPRAZOLE
     Indication: GASTROOESOPHAGEAL REFLUX DISEASE
     Route: 050
  14. LOSARTAN. [Concomitant]
     Active Substance: LOSARTAN
     Route: 050
  15. DILTIAZEM [Concomitant]
     Active Substance: DILTIAZEM
  16. NITROSTAT [Concomitant]
     Active Substance: NITROGLYCERIN

REACTIONS (27)
  - Apparent death [Unknown]
  - Pharyngo-oesophageal diverticulum [Unknown]
  - Somnolence [Unknown]
  - Psychomotor hyperactivity [Unknown]
  - Drug effect delayed [Unknown]
  - Eye disorder [Unknown]
  - Blood magnesium decreased [Unknown]
  - Anxiety [Unknown]
  - Dyspnoea [Unknown]
  - Bladder cancer [Unknown]
  - Fluid retention [Unknown]
  - Glaucoma [Unknown]
  - Productive cough [Unknown]
  - Eye irritation [Unknown]
  - Herpes zoster [Unknown]
  - Device failure [Unknown]
  - Malnutrition [Unknown]
  - Cough [Unknown]
  - Dysphagia [Unknown]
  - Regurgitation [Unknown]
  - Product use issue [Unknown]
  - Lung disorder [Unknown]
  - Asthma [Unknown]
  - Anaemia [Unknown]
  - Weight increased [Unknown]
  - Cataract [Unknown]
  - Intentional device misuse [Unknown]

NARRATIVE: CASE EVENT DATE: 20160123
